FAERS Safety Report 22175175 (Version 1)
Quarter: 2023Q2

REPORT INFORMATION
  Report Type: Spontaneous
  Country: ES (occurrence: ES)
  Receive Date: 20230405
  Receipt Date: 20230405
  Transmission Date: 20230721
  Serious: Yes (Hospitalization)
  Sender: FDA-Public Use
  Company Number: ES-REIGJOFR-202300195

PATIENT
  Age: 32 Year
  Sex: Female
  Weight: 45 kg

DRUGS (5)
  1. VORICONAZOLE [Suspect]
     Active Substance: VORICONAZOLE
     Indication: Bronchopulmonary aspergillosis
     Dosage: 6 MILLIGRAM/KILOGRAM, TWO TIMES A DAY
     Route: 042
  2. VORICONAZOLE [Suspect]
     Active Substance: VORICONAZOLE
     Indication: Vasculitis
     Dosage: 4 MILLIGRAM/KILOGRAM, TWO TIMES A DAY
     Route: 042
  3. VORICONAZOLE [Suspect]
     Active Substance: VORICONAZOLE
     Dosage: 4.89 MILLIGRAM/KILOGRAM, TWO TIMES A DAY
     Route: 042
  4. VORICONAZOLE [Suspect]
     Active Substance: VORICONAZOLE
     Dosage: 6.67 MILLIGRAM/KILOGRAM, TWO TIMES A DAY
     Route: 042
  5. VORICONAZOLE [Suspect]
     Active Substance: VORICONAZOLE
     Dosage: 8 MILLIGRAM/KILOGRAM, TWO TIMES A DAY
     Route: 042

REACTIONS (3)
  - Drug level below therapeutic [Not Recovered/Not Resolved]
  - Therapeutic response decreased [Unknown]
  - Drug ineffective [Not Recovered/Not Resolved]
